FAERS Safety Report 25900508 (Version 1)
Quarter: 2025Q4

REPORT INFORMATION
  Report Type: Spontaneous
  Country: US (occurrence: None)
  Receive Date: 20251008
  Receipt Date: 20251008
  Transmission Date: 20260118
  Serious: Yes (Hospitalization)
  Sender: FDA-CTU
  Company Number: None

PATIENT
  Age: 90 Year
  Sex: Female

DRUGS (1)
  1. LENALIDOMIDE [Suspect]
     Active Substance: LENALIDOMIDE
     Indication: Plasma cell myeloma
     Dosage: 15MG QD ORL
     Route: 048
     Dates: start: 20250806

REACTIONS (3)
  - Gastrointestinal haemorrhage [None]
  - Colitis [None]
  - Therapy interrupted [None]

NARRATIVE: CASE EVENT DATE: 20250813
